FAERS Safety Report 7654920-5 (Version None)
Quarter: 2011Q3

REPORT INFORMATION
  Report Type: 
  Country: None (occurrence: None)
  Receive Date: 20110804
  Receipt Date: 20110726
  Transmission Date: 20111222
  Serious: Yes (Hospitalization, Other)
  Sender: FDA-Public Use
  Company Number: US-BAYER-201035614NA

PATIENT
  Age: 29 Year
  Sex: Female
  Weight: 53.515 kg

DRUGS (14)
  1. YAZ [Suspect]
     Route: 048
     Dates: start: 20020501
  2. DROSPIRENONE AND ETHINYL ESTRADIOL [Suspect]
     Route: 048
     Dates: start: 20020501
  3. SPIRONOLACTONE [Concomitant]
     Dosage: UNK
     Dates: start: 20070101, end: 20100101
  4. FUROSEMIDE [Concomitant]
     Dosage: UNK
     Dates: start: 20070101, end: 20100101
  5. WARFARIN SODIUM [Concomitant]
     Dosage: UNK
     Dates: start: 20070101, end: 20100101
  6. LYRICA [Concomitant]
     Dosage: UNK
     Dates: start: 20080101, end: 20100101
  7. YASMIN [Suspect]
     Route: 048
     Dates: start: 20020501
  8. LASIX [Concomitant]
  9. XANAX [Concomitant]
  10. MIRALAX [Concomitant]
  11. DIGOXIN [Concomitant]
     Dosage: UNK
     Dates: start: 20060101
  12. CLARITIN [Concomitant]
     Dosage: UNK
     Dates: start: 20000101
  13. PERCOCET [Concomitant]
  14. ALPRAZOLAM [Concomitant]
     Dosage: UNK
     Dates: start: 20080101, end: 20100101

REACTIONS (4)
  - CHOLECYSTITIS CHRONIC [None]
  - MENTAL DISORDER [None]
  - PAIN [None]
  - GALLBLADDER DISORDER [None]
